FAERS Safety Report 15672341 (Version 1)
Quarter: 2018Q4

REPORT INFORMATION
  Report Type: Report from Study
  Country: US (occurrence: US)
  Receive Date: 20181129
  Receipt Date: 20181129
  Transmission Date: 20190205
  Serious: No
  Sender: FDA-Public Use
  Company Number: US-TESARO-US-2018TSO02586

PATIENT
  Sex: Female

DRUGS (4)
  1. ZEJULA [Suspect]
     Active Substance: NIRAPARIB
     Dosage: 200 MG, QD
     Route: 048
     Dates: start: 20171112
  2. ZEJULA [Suspect]
     Active Substance: NIRAPARIB
     Indication: OVARIAN CANCER
     Dosage: 200 MG, QD
     Route: 048
     Dates: start: 20171027
  3. ZEJULA [Suspect]
     Active Substance: NIRAPARIB
     Dosage: 200 MG, QD
     Route: 048
  4. GABAPENTIN. [Concomitant]
     Active Substance: GABAPENTIN
     Indication: PRODUCT USED FOR UNKNOWN INDICATION
     Dosage: UNK

REACTIONS (9)
  - Pain [Recovering/Resolving]
  - Hyperhidrosis [Recovering/Resolving]
  - Skin discolouration [Recovering/Resolving]
  - Muscle spasms [Recovered/Resolved]
  - Carbohydrate antigen 125 increased [Recovered/Resolved]
  - Depression [Not Recovered/Not Resolved]
  - Neuropathy peripheral [Recovering/Resolving]
  - Eastern Cooperative Oncology Group performance status worsened [Unknown]
  - Dehydration [Recovered/Resolved]
